FAERS Safety Report 25342368 (Version 2)
Quarter: 2025Q3

REPORT INFORMATION
  Report Type: Spontaneous
  Country: US (occurrence: US)
  Receive Date: 20250521
  Receipt Date: 20250820
  Transmission Date: 20251020
  Serious: No
  Sender: CATALYST PHARMA
  Company Number: US-CATALYST PHARMACEUTICALS-US-CATA-25-00201

PATIENT
  Age: 8 Year
  Sex: Male
  Weight: 40.499 kg

DRUGS (10)
  1. AGAMREE [Suspect]
     Active Substance: VAMOROLONE
     Indication: Duchenne muscular dystrophy
     Dosage: 5.2 ML ONCE DAILY
     Route: 048
     Dates: start: 20250116, end: 2025
  2. AGAMREE [Suspect]
     Active Substance: VAMOROLONE
     Dosage: 5 ML BY MOUTH ONCE DAILY TAPERING DOWNWARD
     Route: 048
     Dates: start: 2025
  3. AMONDYS 45 [Concomitant]
     Active Substance: CASIMERSEN
     Indication: Duchenne muscular dystrophy
     Dosage: ONCE WEEKLY
     Route: 042
  4. PREVACID [Concomitant]
     Active Substance: LANSOPRAZOLE
     Indication: Gastrooesophageal reflux disease
     Dosage: 30 MG DAILY
     Route: 065
  5. PREVACID [Concomitant]
     Active Substance: LANSOPRAZOLE
     Indication: Gastrointestinal disorder prophylaxis
     Dosage: 15 MG DAILY
     Route: 048
  6. VIACTIVE CALCIUM + D [Concomitant]
     Indication: Prophylaxis
     Dosage: 2 TABLETS ONCE A DAY
     Route: 048
  7. FLINTSTONES MULTIPLE VITAMINS [Concomitant]
     Indication: Hypovitaminosis
     Dosage: 2 TABLETS ONCE A DAY
     Route: 048
  8. VITAMIN D3 [Concomitant]
     Active Substance: CHOLECALCIFEROL
     Indication: Prophylaxis
     Dosage: 1000 IU (25 MCG) ONCE A DAY
     Route: 048
  9. IBUPROFEN [Concomitant]
     Active Substance: IBUPROFEN
     Indication: Headache
     Route: 048
  10. TYLENOL [Concomitant]
     Active Substance: ACETAMINOPHEN
     Indication: Headache
     Route: 065

REACTIONS (1)
  - Weight increased [Not Recovered/Not Resolved]

NARRATIVE: CASE EVENT DATE: 20250116
